FAERS Safety Report 10494363 (Version 3)
Quarter: 2015Q1

REPORT INFORMATION
  Report Type: Spontaneous
  Country: US (occurrence: None)
  Receive Date: 20140815
  Receipt Date: 20150204
  Transmission Date: 20150720
  Serious: Yes (Life-Threatening, Hospitalization, Other)
  Sender: FDA-Public Use
  Company Number: ADR-2014-00067

PATIENT
  Age: 85 Year
  Sex: Male

DRUGS (4)
  1. MIRAPEX [Suspect]
     Active Substance: PRAMIPEXOLE DIHYDROCHLORIDE
     Route: 048
  2. FLOMAX [Suspect]
     Active Substance: TAMSULOSIN HYDROCHLORIDE
     Route: 048
  3. NEXIUM [Suspect]
     Active Substance: ESOMEPRAZOLE MAGNESIUM
  4. LIORESAL [Suspect]
     Active Substance: BACLOFEN
     Indication: MUSCLE SPASTICITY
     Dates: start: 20120405, end: 20140109

REACTIONS (12)
  - Drooling [None]
  - No therapeutic response [None]
  - Asthenia [None]
  - Mental status changes [None]
  - VIIth nerve paralysis [None]
  - Aggression [None]
  - Vision blurred [None]
  - Overdose [None]
  - Device occlusion [None]
  - Device malfunction [None]
  - Confusional state [None]
  - Seizure [None]

NARRATIVE: CASE EVENT DATE: 20140109
